FAERS Safety Report 9984352 (Version 1)
Quarter: 2014Q1

REPORT INFORMATION
  Report Type: Spontaneous
  Country: US (occurrence: US)
  Receive Date: 20140304
  Receipt Date: 20140304
  Transmission Date: 20141002
  Serious: No
  Sender: FDA-Public Use
  Company Number: US-ABBVIE-13P-163-1086403-00

PATIENT
  Age: 63 Year
  Sex: Male

DRUGS (2)
  1. HUMIRA [Suspect]
     Indication: PSORIASIS
     Dates: start: 20130224, end: 20130224
  2. HUMIRA [Suspect]
     Dates: start: 20130303, end: 20130331

REACTIONS (2)
  - Drug eruption [Recovered/Resolved]
  - Rash generalised [Recovered/Resolved]
